FAERS Safety Report 5802957-0 (Version None)
Quarter: 2008Q3

REPORT INFORMATION
  Report Type: 
  Country: None (occurrence: None)
  Receive Date: 20080708
  Receipt Date: 20080702
  Transmission Date: 20090109
  Serious: No
  Sender: FDA-Public Use
  Company Number: DE-ROCHE-563309

PATIENT
  Sex: Female
  Weight: 56 kg

DRUGS (7)
  1. ROACCUTAN [Suspect]
     Indication: ACNE
     Route: 065
     Dates: start: 20060101, end: 20060801
  2. ROACCUTAN [Suspect]
     Route: 065
     Dates: start: 20070201, end: 20071101
  3. ROACCUTAN [Suspect]
     Dosage: EVERY SECOND OR THIRD DAY.
     Route: 065
     Dates: start: 20071215, end: 20080215
  4. GRIPPOSTAD [Concomitant]
  5. ACETAMINOPHEN [Concomitant]
  6. METOCLOPRAMIDE [Concomitant]
     Dosage: DRUG NAME: MCP TROPFEN
  7. DIANE-35 [Concomitant]
     Indication: CONTRACEPTION
     Dates: start: 19960101, end: 20080501

REACTIONS (2)
  - NO ADVERSE EVENT [None]
  - PREGNANCY [None]
